FAERS Safety Report 4306796-1 (Version None)
Quarter: 2004Q1

REPORT INFORMATION
  Report Type: 
  Country: None (occurrence: None)
  Receive Date: 20040225
  Receipt Date: 20040211
  Transmission Date: 20041129
  Serious: Yes (Hospitalization, Other)
  Sender: FDA-Public Use
  Company Number: USA030947591

PATIENT
  Age: 79 Year
  Sex: Female
  Weight: 36 kg

DRUGS (3)
  1. FORTEO [Suspect]
     Indication: OSTEOPOROSIS
     Dosage: 20 UG/DAY
     Dates: start: 20030903
  2. MULTIVITAMIN [Concomitant]
  3. INFLUENZA VACCINE [Concomitant]

REACTIONS (6)
  - FATIGUE [None]
  - FEELING ABNORMAL [None]
  - HIP FRACTURE [None]
  - INSOMNIA [None]
  - MUSCLE CRAMP [None]
  - PHARMACEUTICAL PRODUCT COMPLAINT [None]
